FAERS Safety Report 13184866 (Version 1)
Quarter: 2017Q1

REPORT INFORMATION
  Report Type: Spontaneous
  Country: NL (occurrence: NL)
  Receive Date: 20170203
  Receipt Date: 20170203
  Transmission Date: 20170428
  Serious: Yes (Other)
  Sender: FDA-Public Use
  Company Number: NL-BAYER-2017-016056

PATIENT
  Age: 21 Year
  Sex: Female

DRUGS (1)
  1. MIRENA [Suspect]
     Active Substance: LEVONORGESTREL
     Dosage: 20 MCG/24HR, CONT
     Route: 015
     Dates: start: 201112, end: 20161208

REACTIONS (9)
  - Ear discomfort [None]
  - Pneumonia [None]
  - Abdominal pain [None]
  - Genital haemorrhage [None]
  - Dyspnoea [None]
  - Rhinitis allergic [None]
  - Cough [None]
  - Tension [None]
  - Nasal discomfort [None]

NARRATIVE: CASE EVENT DATE: 20120612
